FAERS Safety Report 4746353-6 (Version None)
Quarter: 2005Q3

REPORT INFORMATION
  Report Type: 
  Country: None (occurrence: None)
  Receive Date: 20050815
  Receipt Date: 20050803
  Transmission Date: 20060218
  Serious: Yes (Death, Other)
  Sender: FDA-Public Use
  Company Number: 2005110862

PATIENT
  Age: 4 Year
  Sex: Female
  Weight: 19.5 kg

DRUGS (1)
  1. SOMATROPIN (SOMATROPIN) [Suspect]
     Indication: PRADER-WILLI SYNDROME
     Dosage: (0.24 MG/KG, WEEKLY)

REACTIONS (5)
  - ARRHYTHMIA [None]
  - CARDIOPULMONARY FAILURE [None]
  - PULMONARY ARTERIAL PRESSURE INCREASED [None]
  - RESPIRATORY DISORDER [None]
  - SUDDEN DEATH [None]
